FAERS Safety Report 6629039-2 (Version None)
Quarter: 2010Q1

REPORT INFORMATION
  Report Type: 
  Country: None (occurrence: None)
  Receive Date: 20100311
  Receipt Date: 20090812
  Transmission Date: 20100710
  Serious: No
  Sender: FDA-Public Use
  Company Number: US-BIOGENIDEC-2009BI025346

PATIENT
  Sex: Female

DRUGS (2)
  1. AVONEX [Suspect]
     Indication: MULTIPLE SCLEROSIS
     Route: 030
  2. IMITREX [Concomitant]
     Indication: MIGRAINE
     Route: 048

REACTIONS (3)
  - FEELING ABNORMAL [None]
  - FEELING HOT [None]
  - INFLUENZA LIKE ILLNESS [None]
